FAERS Safety Report 23616479 (Version 1)
Quarter: 2024Q1

REPORT INFORMATION
  Report Type: Spontaneous
  Country: US (occurrence: None)
  Receive Date: 20240308
  Receipt Date: 20240308
  Transmission Date: 20240410
  Serious: Yes (Death, Hospitalization, Other)
  Sender: FDA-Public Use
  Company Number: None

PATIENT
  Age: 66 Year
  Sex: Male
  Weight: 106.96 kg

DRUGS (1)
  1. TAGRISSO [Suspect]
     Active Substance: OSIMERTINIB

REACTIONS (12)
  - Back pain [None]
  - Dizziness [None]
  - Gait inability [None]
  - Syncope [None]
  - Loss of consciousness [None]
  - Decreased appetite [None]
  - Weight decreased [None]
  - Orthostatic hypotension [None]
  - Malaise [None]
  - Loss of consciousness [None]
  - Fall [None]
  - Myocardial infarction [None]

NARRATIVE: CASE EVENT DATE: 20240215
